FAERS Safety Report 5087046-8 (Version None)
Quarter: 2006Q3

REPORT INFORMATION
  Report Type: 
  Country: None (occurrence: None)
  Receive Date: 20060821
  Receipt Date: 20060807
  Transmission Date: 20061208
  Serious: Yes (Disabling, Other)
  Sender: FDA-Public Use
  Company Number: 2006098451

PATIENT
  Age: 43 Year
  Sex: Female

DRUGS (4)
  1. CELEBREX [Suspect]
     Indication: BACK INJURY
     Dosage: ORAL
     Route: 048
     Dates: start: 20010101
  2. CELEBREX [Suspect]
     Indication: INTERVERTEBRAL DISC DISORDER
     Dosage: ORAL
     Route: 048
     Dates: start: 20010101
  3. BEXTRA [Suspect]
     Indication: BACK INJURY
     Dosage: ORAL
     Route: 048
     Dates: start: 20010101
  4. BEXTRA [Suspect]
     Indication: INTERVERTEBRAL DISC DISORDER
     Dosage: ORAL
     Route: 048
     Dates: start: 20010101

REACTIONS (7)
  - ASTHENIA [None]
  - CARDIOVASCULAR DISORDER [None]
  - CEREBRAL HAEMORRHAGE [None]
  - CHEST PAIN [None]
  - FATIGUE [None]
  - HYPERTENSION [None]
  - PROCEDURAL COMPLICATION [None]
